FAERS Safety Report 5309581-7 (Version None)
Quarter: 2007Q2

REPORT INFORMATION
  Report Type: 
  Country: None (occurrence: None)
  Receive Date: 20070425
  Receipt Date: 20070425
  Transmission Date: 20071010
  Serious: No
  Sender: FDA-Public Use
  Company Number: None

PATIENT
  Sex: Male
  Weight: 100.6985 kg

DRUGS (1)
  1. NIASPAN [Suspect]
     Indication: ADVERSE DRUG REACTION
     Dosage: ORAL
     Route: 048
     Dates: start: 20070328, end: 20070409

REACTIONS (3)
  - HEPATIC ENZYME ABNORMAL [None]
  - INFLAMMATION [None]
  - MOUTH ULCERATION [None]
